FAERS Safety Report 12311150 (Version 1)
Quarter: 2016Q2

REPORT INFORMATION
  Report Type: Other
  Country: None (occurrence: US)
  Receive Date: 20160427
  Receipt Date: 20160427
  Transmission Date: 20160815
  Serious: Yes (Other)
  Sender: FDA-Public Use
  Company Number: US-STERIS CORPORATION-1051096

PATIENT

DRUGS (1)
  1. ALCARE FOAMED ANTISEPTIC HANDRUB [Suspect]
     Active Substance: ALCOHOL

REACTIONS (1)
  - Adverse event [Unknown]

NARRATIVE: CASE EVENT DATE: 20160406
